FAERS Safety Report 5323192-9 (Version None)
Quarter: 2007Q2

REPORT INFORMATION
  Report Type: 
  Country: None (occurrence: None)
  Receive Date: 20070220
  Receipt Date: 20061114
  Transmission Date: 20071010
  Serious: No
  Sender: FDA-Public Use
  Company Number: WAES 0611USA04461

PATIENT
  Age: 78 Year
  Sex: Female

DRUGS (7)
  1. JANUVIA [Suspect]
     Indication: DIABETES MELLITUS
     Dosage: 100 MG/DAILY/PO
     Route: 048
     Dates: start: 20061113
  2. ATACAND [Concomitant]
  3. CRESTOR [Concomitant]
  4. GLUCOTROL [Concomitant]
  5. LASIX [Concomitant]
  6. NEXIUM [Concomitant]
  7. TOPROL-XL [Concomitant]

REACTIONS (2)
  - EYE OEDEMA [None]
  - EYE PRURITUS [None]
